FAERS Safety Report 24594896 (Version 1)
Quarter: 2024Q4

REPORT INFORMATION
  Report Type: Spontaneous
  Country: US (occurrence: US)
  Receive Date: 20241108
  Receipt Date: 20241108
  Transmission Date: 20250115
  Serious: No
  Sender: GE HEALTHCARE
  Company Number: US-GE HEALTHCARE-2024CSU009288

PATIENT
  Age: 29 Year
  Sex: Female
  Weight: 95 kg

DRUGS (1)
  1. VISIPAQUE [Suspect]
     Active Substance: IODIXANOL
     Indication: Computerised tomogram abdomen
     Dosage: 100 ML, TOTAL
     Route: 065
     Dates: start: 20240811, end: 20240811

REACTIONS (1)
  - Urticaria [Unknown]

NARRATIVE: CASE EVENT DATE: 20240811
